FAERS Safety Report 11758922 (Version 1)
Quarter: 2015Q4

REPORT INFORMATION
  Report Type: Spontaneous
  Country: US (occurrence: US)
  Receive Date: 20151120
  Receipt Date: 20151120
  Transmission Date: 20160304
  Serious: Yes (Hospitalization)
  Sender: FDA-Public Use
  Company Number: US-BD RX INC-2015BDR00631

PATIENT
  Age: 9 Year
  Sex: Female

DRUGS (14)
  1. PROMETHAZINE [Suspect]
     Active Substance: PROMETHAZINE\PROMETHAZINE HYDROCHLORIDE
     Indication: NAUSEA
     Dosage: 12.5 MG, EVERY 4 HOURS
     Route: 048
  2. NITAZOXANIDE [Concomitant]
     Active Substance: NITAZOXANIDE
     Dosage: 10 ML (200 MG), EVERY 12 HOURS
     Route: 048
  3. ONDANSETRON [Concomitant]
     Active Substance: ONDANSETRON
     Dosage: 4 MG, EVERY 6 HOURS
     Route: 048
  4. OMEPRAZOLE. [Concomitant]
     Active Substance: OMEPRAZOLE
     Dosage: 20 MG, 1X/DAY
     Route: 048
  5. SUCRALFATE. [Concomitant]
     Active Substance: SUCRALFATE
  6. MONTELUKAST [Concomitant]
     Active Substance: MONTELUKAST SODIUM
     Dosage: 5 MG, 1X/DAY
     Route: 048
  7. SERTRALINE [Concomitant]
     Active Substance: SERTRALINE HYDROCHLORIDE
     Indication: ANXIETY
     Dosage: 6.25 MG, 1X/DAY
     Route: 048
  8. ACETAMINOPHEN. [Concomitant]
     Active Substance: ACETAMINOPHEN
     Dosage: 10 ML (320 MG), EVERY 4 HOURS
     Route: 048
  9. HYOSCYAMINE. [Suspect]
     Active Substance: HYOSCYAMINE
     Indication: DIARRHOEA
     Dosage: 0.125 MG, 2X/DAY
     Route: 048
  10. SERTRALINE [Concomitant]
     Active Substance: SERTRALINE HYDROCHLORIDE
     Dosage: 12.5 MG, 1X/DAY
     Route: 048
  11. MELATONIN [Concomitant]
     Active Substance: MELATONIN
     Dosage: 3 MG, 1X/DAY
     Route: 048
  12. DIPHENHYDRAMINE HYDROCHLORIDE. [Suspect]
     Active Substance: DIPHENHYDRAMINE HYDROCHLORIDE
     Dosage: 25 MG, 1X/DAY
     Route: 048
  13. CYPROHEPTADINE. [Suspect]
     Active Substance: CYPROHEPTADINE
     Indication: SEROTONIN SYNDROME
     Dosage: 0.5 TABLET, 1X/DAY
     Route: 048
  14. PROMETHAZINE [Suspect]
     Active Substance: PROMETHAZINE\PROMETHAZINE HYDROCHLORIDE
     Indication: VOMITING

REACTIONS (1)
  - Anticholinergic syndrome [Recovered/Resolved]
